FAERS Safety Report 20652630 (Version 1)
Quarter: 2022Q1

REPORT INFORMATION
  Report Type: Spontaneous
  Country: US (occurrence: US)
  Receive Date: 20220330
  Receipt Date: 20220330
  Transmission Date: 20220424
  Serious: Yes (Other)
  Sender: FDA-Public Use
  Company Number: US-BRISTOL-MYERS SQUIBB COMPANY-2022-011513

PATIENT
  Age: 62 Year
  Sex: Female
  Weight: 120.20 kg

DRUGS (1)
  1. REVLIMID [Suspect]
     Active Substance: LENALIDOMIDE
     Indication: Plasma cell myeloma
     Dosage: STRENGTH : 10 MG CAPSULE 28/BTL, 1 CAPSULE AT BEDTIME BY MOUTH.
     Route: 048
     Dates: start: 20220203

REACTIONS (3)
  - Lower limb fracture [Unknown]
  - Multiple fractures [Unknown]
  - Mobility decreased [Unknown]
